FAERS Safety Report 23196898 (Version 1)
Quarter: 2023Q4

REPORT INFORMATION
  Report Type: Spontaneous
  Country: DE (occurrence: None)
  Receive Date: 20231117
  Receipt Date: 20231117
  Transmission Date: 20240109
  Serious: Yes (Death)
  Sender: FDA-Public Use
  Company Number: 2023A260493

PATIENT
  Age: 72 Year
  Sex: Male

DRUGS (5)
  1. DURVALUMAB [Suspect]
     Active Substance: DURVALUMAB
  2. TREMELIMUMAB [Concomitant]
     Active Substance: TREMELIMUMAB
  3. SORAFENIB [Concomitant]
     Active Substance: SORAFENIB
  4. CABOZANTINIB [Concomitant]
     Active Substance: CABOZANTINIB
  5. RAMUCIRUMAB [Concomitant]
     Active Substance: RAMUCIRUMAB

REACTIONS (5)
  - Neoplasm progression [Fatal]
  - Hypothyroidism [Unknown]
  - Diarrhoea [Unknown]
  - Fatigue [Unknown]
  - Dysphonia [Unknown]
